FAERS Safety Report 25742488 (Version 1)
Quarter: 2025Q3

REPORT INFORMATION
  Report Type: Report from Study
  Country: US (occurrence: US)
  Receive Date: 20250829
  Receipt Date: 20250829
  Transmission Date: 20251020
  Serious: Yes (Death, Hospitalization, Other)
  Sender: ACADIA PHARMACEUTICALS
  Company Number: US-ACADIA PHARMACEUTICALS INC.-ACA-2025-PIM-009470

PATIENT
  Age: 86 Year
  Sex: Male

DRUGS (1)
  1. NUPLAZID [Suspect]
     Active Substance: PIMAVANSERIN TARTRATE
     Indication: Delusional disorder, unspecified type
     Dosage: 34 MILLIGRAM, QD
     Route: 048
     Dates: start: 202404

REACTIONS (1)
  - Death [Fatal]

NARRATIVE: CASE EVENT DATE: 20250804
